FAERS Safety Report 8541291-5 (Version None)
Quarter: 2012Q3

REPORT INFORMATION
  Report Type: 
  Country: None (occurrence: None)
  Receive Date: 20120726
  Receipt Date: 20120723
  Transmission Date: 20120928
  Serious: Yes (Other)
  Sender: FDA-Public Use
  Company Number: US-BAYER-2012-074554

PATIENT
  Age: 56 Year
  Sex: Female

DRUGS (11)
  1. OMEPRAZOLE [Concomitant]
  2. PROCARDIA [Concomitant]
  3. NETYLIN [Concomitant]
  4. LEVITRA [Suspect]
     Indication: SKIN ULCER
  5. LEVITRA [Suspect]
     Indication: PAIN
  6. LEVITRA [Suspect]
     Indication: SCLERODERMA
     Dosage: 20 MG, QD
     Route: 048
     Dates: start: 20100801
  7. MAXZIDE [Concomitant]
  8. LEVITRA [Suspect]
     Indication: DYSPNOEA
  9. LEVITRA [Suspect]
     Indication: FATIGUE
  10. NIFEDIPINE [Concomitant]
  11. LEVITRA [Suspect]
     Indication: ULCER

REACTIONS (1)
  - THERAPEUTIC RESPONSE UNEXPECTED [None]
